FAERS Safety Report 8383328-2 (Version None)
Quarter: 2012Q2

REPORT INFORMATION
  Report Type: 
  Country: None (occurrence: None)
  Receive Date: 20120524
  Receipt Date: 20120514
  Transmission Date: 20120825
  Serious: Yes (Death, Life-Threatening, Hospitalization, Other)
  Sender: FDA-Public Use
  Company Number: JP-UCBSA-057372

PATIENT
  Age: 41 Year
  Sex: Male

DRUGS (16)
  1. TEMODAL [Suspect]
     Indication: MALIGNANT GLIOMA
     Dosage: DAILY DOSE: 320 MG
     Route: 048
     Dates: end: 20111225
  2. METHYLCOBAL [Concomitant]
     Indication: IIIRD NERVE PARALYSIS
     Dosage: DAILY DOSE: 1500 MCG
     Route: 048
     Dates: end: 20120127
  3. RAMELTEON [Concomitant]
     Indication: VOMITING
     Dosage: DAILY DOSE: 0.1 MG
     Route: 048
     Dates: end: 20111225
  4. OMEPRAZOLE [Concomitant]
     Indication: GASTRIC ULCER
     Dosage: DAILY DOSE: 20 MG
     Route: 041
     Dates: start: 20120127, end: 20120129
  5. GLYCEOL [Concomitant]
     Indication: ALTERED STATE OF CONSCIOUSNESS
     Dates: start: 20120101
  6. LOXONIN [Concomitant]
     Indication: HEADACHE
     Dosage: DAILY DOSE: 180 MG
     Route: 048
     Dates: start: 20120118, end: 20120126
  7. GLYCEOL [Concomitant]
     Indication: HEADACHE
     Dates: start: 20120101
  8. DECADRON [Concomitant]
     Indication: ALTERED STATE OF CONSCIOUSNESS
     Dates: start: 20120101
  9. MUCOSTA [Concomitant]
     Indication: GASTRITIS
     Dosage: DAILY DOSE: 300 MG
     Route: 048
     Dates: start: 20120118, end: 20120126
  10. WAKOBITAL [Concomitant]
     Indication: COMPLEX PARTIAL SEIZURES
     Dosage: DAILY DOSE: 100 MG
     Route: 054
     Dates: start: 20120126, end: 20120210
  11. PHENOBARBITAL TAB [Concomitant]
     Indication: COMPLEX PARTIAL SEIZURES
     Dosage: DAILY DOSE: 100 MG
     Route: 048
     Dates: start: 20120125, end: 20120126
  12. DECADRON [Concomitant]
     Indication: HEADACHE
     Dates: start: 20120101
  13. PHENYTOIN SODIUM CAP [Suspect]
     Indication: CONVULSION PROPHYLAXIS
     Dosage: DAILY DOSE: 250 MG
     Route: 048
     Dates: end: 20120127
  14. KEPPRA [Suspect]
     Indication: COMPLEX PARTIAL SEIZURES
     Route: 048
     Dates: start: 20111222, end: 20120131
  15. PREDNISOLONE [Concomitant]
     Indication: ALTERED STATE OF CONSCIOUSNESS
     Dates: start: 20120101
  16. LANSOPRAZOLE [Concomitant]
     Indication: PROPHYLAXIS AGAINST GASTROINTESTINAL ULCER
     Dosage: DAILY DOSE: 30 MG
     Route: 048
     Dates: end: 20120127

REACTIONS (6)
  - HEADACHE [None]
  - THROMBOCYTOPENIA [None]
  - MALIGNANT GLIOMA [None]
  - NEOPLASM MALIGNANT [None]
  - LYMPHOPENIA [None]
  - ALTERED STATE OF CONSCIOUSNESS [None]
